FAERS Safety Report 10204916 (Version 1)
Quarter: 2014Q2

REPORT INFORMATION
  Report Type: Spontaneous
  Country: IL (occurrence: IL)
  Receive Date: 20140529
  Receipt Date: 20140529
  Transmission Date: 20141212
  Serious: Yes (Hospitalization, Other)
  Sender: FDA-Public Use
  Company Number: PHHY2014IL061433

PATIENT
  Age: 54 Year
  Sex: Male

DRUGS (1)
  1. TOPIRAMATE [Suspect]
     Indication: WEIGHT DECREASED
     Dosage: 50 MG, PER DAY
     Route: 048

REACTIONS (16)
  - Conjunctival hyperaemia [Unknown]
  - Lens disorder [Unknown]
  - Ciliary hyperaemia [Unknown]
  - Choroidal effusion [Recovering/Resolving]
  - Iris adhesions [Unknown]
  - Visual acuity reduced [Recovering/Resolving]
  - Headache [Unknown]
  - Intraocular pressure increased [Recovering/Resolving]
  - Angle closure glaucoma [Unknown]
  - Vision blurred [Recovering/Resolving]
  - Ocular hyperaemia [Unknown]
  - Uveitis [Unknown]
  - Corneal oedema [Unknown]
  - Mydriasis [Unknown]
  - Pupil fixed [Unknown]
  - Flat anterior chamber of eye [Unknown]
